FAERS Safety Report 17979958 (Version 1)
Quarter: 2020Q3

REPORT INFORMATION
  Report Type: Spontaneous
  Country: CN (occurrence: CN)
  Receive Date: 20200703
  Receipt Date: 20200703
  Transmission Date: 20201103
  Serious: Yes (Hospitalization, Other)
  Sender: FDA-Public Use
  Company Number: CN-009507513-2006CHN009483

PATIENT
  Age: 72 Year
  Sex: Male
  Weight: 70 kg

DRUGS (2)
  1. CANCIDAS [Suspect]
     Active Substance: CASPOFUNGIN ACETATE
     Indication: PNEUMONIA
     Dosage: 50 MILLIGRAM, QD
     Route: 042
     Dates: start: 20200617, end: 20200619
  2. SODIUM CHLORIDE. [Concomitant]
     Active Substance: SODIUM CHLORIDE
     Dosage: 0.9% SODIUM CHLORIDE INJECTION 100ML, QD, IVGTT

REACTIONS (8)
  - Coronary artery disease [Unknown]
  - Inguinal hernia [Unknown]
  - Hip arthroplasty [Unknown]
  - Hypertension [Unknown]
  - Pneumonia [Unknown]
  - Aortic dissection [Unknown]
  - Drug-induced liver injury [Recovering/Resolving]
  - Acute myocardial infarction [Unknown]

NARRATIVE: CASE EVENT DATE: 20200619
